FAERS Safety Report 4322594-7 (Version None)
Quarter: 2004Q1

REPORT INFORMATION
  Report Type: 
  Country: None (occurrence: None)
  Receive Date: 20040324
  Receipt Date: 20040318
  Transmission Date: 20041129
  Serious: Yes (Other)
  Sender: FDA-Public Use
  Company Number: PHBS2004JP03780

PATIENT
  Age: 65 Year
  Sex: Male

DRUGS (6)
  1. ZADITEN [Suspect]
     Indication: PRURITUS
     Dosage: 2 UNK, UNK
     Route: 048
     Dates: start: 20040302, end: 20040311
  2. ASPIRIN [Concomitant]
     Dosage: 1 DF, UNK
     Route: 048
     Dates: start: 20030410
  3. TENORMIN [Concomitant]
     Dosage: 1 DF, UNK
     Route: 048
     Dates: start: 20030410
  4. SIGMART [Concomitant]
     Dosage: 3 DF, UNK
     Route: 048
     Dates: start: 20030410
  5. ITOROL [Concomitant]
     Dosage: 2 DF, UNK
     Route: 048
     Dates: start: 20030410
  6. CALCIUM CARBONATE [Concomitant]

REACTIONS (2)
  - EXANTHEM [None]
  - RASH GENERALISED [None]
